FAERS Safety Report 6413359-0 (Version None)
Quarter: 2009Q4

REPORT INFORMATION
  Report Type: 
  Country: None (occurrence: None)
  Receive Date: 20091022
  Receipt Date: 20091022
  Transmission Date: 20100525
  Serious: Yes (Hospitalization)
  Sender: FDA-Public Use
  Company Number: None

PATIENT
  Age: 19 Year
  Sex: Male
  Weight: 29.4838 kg

DRUGS (2)
  1. PIPERACILLIN/TAZOBACTAM 3.4 GRAMS [Suspect]
     Indication: CYSTIC FIBROSIS
     Dosage: 3.4 GRAMS ONCE IV
     Route: 042
     Dates: start: 20090831
  2. PIPERACILLIN/TAZOBACTAM 3.4 GRAMS [Suspect]
     Indication: PNEUMONIA
     Dosage: 3.4 GRAMS ONCE IV
     Route: 042
     Dates: start: 20090831

REACTIONS (3)
  - ANAPHYLACTIC REACTION [None]
  - HYPOTENSION [None]
  - RENAL FAILURE ACUTE [None]
